FAERS Safety Report 5290577-9 (Version None)
Quarter: 2007Q2

REPORT INFORMATION
  Report Type: 
  Country: None (occurrence: None)
  Receive Date: 20070405
  Receipt Date: 20070405
  Transmission Date: 20071010
  Serious: Yes (Hospitalization)
  Sender: FDA-Public Use
  Company Number: None

PATIENT
  Age: 54 Year
  Sex: Female
  Weight: 120 kg

DRUGS (13)
  1. HEPARIN [Suspect]
     Indication: DEEP VEIN THROMBOSIS
     Dosage: 2100 U/HR IV
     Dates: start: 20061031, end: 20061106
  2. HEPARIN [Suspect]
     Indication: PROPHYLAXIS
     Dosage: 5000 U SQ
     Route: 058
     Dates: start: 20061022, end: 20061102
  3. INSULIN [Concomitant]
  4. RANITIDINE [Concomitant]
  5. APAP TAB [Concomitant]
  6. BISACODYL [Concomitant]
  7. ZOFRAN [Concomitant]
  8. CEFAZOLIN [Concomitant]
  9. CEFEPIME [Concomitant]
  10. MAALOX FAST BLOCKER [Concomitant]
  11. MAG CITRATE [Concomitant]
  12. MORPHINE [Concomitant]
  13. PHENYTOIN [Concomitant]

REACTIONS (2)
  - DEEP VEIN THROMBOSIS [None]
  - PLATELET COUNT DECREASED [None]
